FAERS Safety Report 6474750-X (Version None)
Quarter: 2009Q4

REPORT INFORMATION
  Report Type: 
  Country: None (occurrence: None)
  Receive Date: 20091204
  Receipt Date: 20091120
  Transmission Date: 20100525
  Serious: No
  Sender: FDA-Public Use
  Company Number: US-B.I. PHARMACEUTICALS,INC./RIDGEFIELD-2009-BP-13526BP

PATIENT
  Sex: Male

DRUGS (6)
  1. CLONIDINE HCL [Suspect]
  2. APIDRA [Suspect]
     Indication: TYPE 2 DIABETES MELLITUS
     Route: 058
     Dates: start: 20080901
  3. APIDRA [Suspect]
     Route: 058
     Dates: start: 20080901
  4. LANTUS [Concomitant]
     Dosage: 30 U
  5. LANTUS [Concomitant]
  6. NIFEDIPINE (PROCARDIA) [Concomitant]

REACTIONS (7)
  - BLOOD GLUCOSE DECREASED [None]
  - BLOOD GLUCOSE INCREASED [None]
  - DRUG INEFFECTIVE [None]
  - HYPERHIDROSIS [None]
  - HYPERTENSION [None]
  - OVERDOSE [None]
  - WRONG TECHNIQUE IN DRUG USAGE PROCESS [None]
